FAERS Safety Report 5369130-4 (Version None)
Quarter: 2007Q2

REPORT INFORMATION
  Report Type: 
  Country: None (occurrence: None)
  Receive Date: 20070625
  Receipt Date: 20070131
  Transmission Date: 20071010
  Serious: No
  Sender: FDA-Public Use
  Company Number: US-ASTRAZENECA-2007UW01986

PATIENT
  Age: 55 Year
  Sex: Female
  Weight: 85.3 kg

DRUGS (4)
  1. CRESTOR [Suspect]
     Indication: BLOOD CHOLESTEROL INCREASED
     Route: 048
  2. LEVOTHYROXINE SODIUM [Concomitant]
  3. ZYRTEC-D [Concomitant]
  4. PREVACID [Concomitant]

REACTIONS (1)
  - WEIGHT LOSS POOR [None]
